FAERS Safety Report 11179013 (Version 2)
Quarter: 2015Q2

REPORT INFORMATION
  Report Type: Spontaneous
  Country: US (occurrence: None)
  Receive Date: 20150527
  Receipt Date: 20150605
  Transmission Date: 20150821
  Serious: Yes (Other)
  Sender: FDA-Public Use
  Company Number: US-145649

PATIENT
  Age: 58 Year
  Sex: Female
  Weight: 101.4 kg

DRUGS (14)
  1. DOXAZOSIN MESYLATE. [Concomitant]
     Active Substance: DOXAZOSIN MESYLATE
  2. CRESTOR [Concomitant]
     Active Substance: ROSUVASTATIN CALCIUM
  3. CARVEDILOL. [Concomitant]
     Active Substance: CARVEDILOL
  4. FERROUS SULFATE [Concomitant]
     Active Substance: FERROUS SULFATE\FERROUS SULFATE, DRIED
  5. SYNTHROID [Concomitant]
     Active Substance: LEVOTHYROXINE SODIUM
  6. WINRHO SDF LIQUID [Suspect]
     Active Substance: HUMAN RHO(D) IMMUNE GLOBULIN
     Indication: IMMUNE THROMBOCYTOPENIC PURPURA
     Route: 040
     Dates: start: 20150310, end: 20150310
  7. CALCIUM CARBONATE. [Concomitant]
     Active Substance: CALCIUM CARBONATE
  8. ASCORBIC ACID. [Concomitant]
     Active Substance: ASCORBIC ACID
  9. NORVASC [Concomitant]
     Active Substance: AMLODIPINE BESYLATE
  10. NOVOLIN [Concomitant]
     Active Substance: INSULIN HUMAN
  11. NOVOLOG [Concomitant]
     Active Substance: INSULIN ASPART
  12. ACETAMINOPHEN AND CODEINE [Concomitant]
     Active Substance: ACETAMINOPHEN\CODEINE PHOSPHATE
  13. FUROSEMIDE. [Concomitant]
     Active Substance: FUROSEMIDE
  14. PREDNISONE. [Concomitant]
     Active Substance: PREDNISONE

REACTIONS (9)
  - Chest discomfort [None]
  - Oxygen saturation decreased [None]
  - Back pain [None]
  - Haemoglobin decreased [None]
  - Hypertension [None]
  - Platelet count decreased [None]
  - Chest pain [None]
  - Red blood cell count decreased [None]
  - Haemolysis [None]

NARRATIVE: CASE EVENT DATE: 20150310
